FAERS Safety Report 8101562-3 (Version None)
Quarter: 2012Q1

REPORT INFORMATION
  Report Type: 
  Country: None (occurrence: None)
  Receive Date: 20120129
  Receipt Date: 20111012
  Transmission Date: 20120608
  Serious: No
  Sender: FDA-Public Use
  Company Number: US-ABBOTT-11P-163-0855820-00

PATIENT
  Sex: Female

DRUGS (9)
  1. HUMIRA [Suspect]
     Dates: start: 20110711
  2. TYLENOL W/ CODEINE NO. 4 [Concomitant]
     Indication: PRODUCT USED FOR UNKNOWN INDICATION
  3. PENICILLIN G SODIUM [Concomitant]
     Indication: PRODUCT USED FOR UNKNOWN INDICATION
  4. CORTIZONE-5 [Concomitant]
     Indication: PRODUCT USED FOR UNKNOWN INDICATION
  5. ALPRAZOLAM [Concomitant]
     Indication: PRODUCT USED FOR UNKNOWN INDICATION
  6. HUMIRA [Suspect]
     Indication: RHEUMATOID ARTHRITIS
     Dates: start: 20110806, end: 20111001
  7. VYTORIN [Concomitant]
     Indication: PRODUCT USED FOR UNKNOWN INDICATION
  8. NEXIUM [Concomitant]
     Indication: PRODUCT USED FOR UNKNOWN INDICATION
  9. ACETAMINOPHEN [Concomitant]
     Indication: PRODUCT USED FOR UNKNOWN INDICATION

REACTIONS (4)
  - VEIN DISORDER [None]
  - INJECTION SITE NODULE [None]
  - OEDEMA PERIPHERAL [None]
  - INJECTION SITE RASH [None]
